FAERS Safety Report 11379756 (Version 1)
Quarter: 2015Q3

REPORT INFORMATION
  Report Type: Spontaneous
  Country: US (occurrence: None)
  Receive Date: 20150813
  Receipt Date: 20150813
  Transmission Date: 20151125
  Serious: Yes (Other)
  Sender: FDA-Public Use
  Company Number: None

PATIENT
  Age: 54 Year
  Sex: Female
  Weight: 96.16 kg

DRUGS (2)
  1. IBUPROFEN. [Concomitant]
     Active Substance: IBUPROFEN
  2. LEVOFLOXACIN. [Suspect]
     Active Substance: LEVOFLOXACIN
     Indication: DENTAL IMPLANTATION
     Route: 048
     Dates: start: 20150811, end: 20150811

REACTIONS (5)
  - Urticaria [None]
  - Pruritus [None]
  - Burning sensation [None]
  - Rash [None]
  - Pain [None]

NARRATIVE: CASE EVENT DATE: 20150811
